FAERS Safety Report 4543191-4 (Version None)
Quarter: 2004Q4

REPORT INFORMATION
  Report Type: 
  Country: None (occurrence: None)
  Receive Date: 20041230
  Receipt Date: 20041230
  Transmission Date: 20050328
  Serious: Yes (Hospitalization)
  Sender: FDA-Public Use
  Company Number: None

PATIENT
  Age: 69 Year
  Sex: Male
  Weight: 77.5651 kg

DRUGS (1)
  1. CLINDAMYCIN HCL [Suspect]

REACTIONS (7)
  - DYSPNOEA [None]
  - EYE REDNESS [None]
  - EYE SWELLING [None]
  - HYPERSENSITIVITY [None]
  - POST PROCEDURAL COMPLICATION [None]
  - URTICARIA [None]
  - WHEEZING [None]
